FAERS Safety Report 9399856 (Version 4)
Quarter: 2013Q3

REPORT INFORMATION
  Report Type: Report from Study
  Country: DE (occurrence: DE)
  Receive Date: 20130715
  Receipt Date: 20130912
  Transmission Date: 20140515
  Serious: Yes (Death, Hospitalization)
  Sender: FDA-Public Use
  Company Number: PHHO2013DE009172

PATIENT
  Age: 74 Year
  Sex: Female
  Weight: 71 kg

DRUGS (6)
  1. EVEROLIMUS [Suspect]
     Indication: BREAST CANCER METASTATIC
     Dosage: 10 MG, QD
     Route: 048
     Dates: start: 20121017, end: 20130320
  2. EXEMESTANE [Suspect]
     Indication: BREAST CANCER METASTATIC
     Dosage: 25 MG, QD
     Route: 048
     Dates: start: 20121017, end: 20130320
  3. MULTIBIONTA [Concomitant]
  4. NOVALGIN [Concomitant]
  5. IBUPROFEN [Concomitant]
  6. MORPHINE [Concomitant]

REACTIONS (2)
  - Neoplasm malignant [Fatal]
  - General physical health deterioration [Fatal]
